FAERS Safety Report 13860085 (Version 1)
Quarter: 2017Q3

REPORT INFORMATION
  Report Type: Spontaneous
  Country: US (occurrence: US)
  Receive Date: 20170811
  Receipt Date: 20170811
  Transmission Date: 20171127
  Serious: Yes (Hospitalization, Other)
  Sender: FDA-Public Use
  Company Number: US-ALVOGEN-2017-ALVOGEN-093019

PATIENT
  Age: 50 Year
  Sex: Female
  Weight: 44 kg

DRUGS (5)
  1. BRILINTA [Suspect]
     Active Substance: TICAGRELOR
     Indication: MYOCARDIAL INFARCTION
  2. TYLENOL [Concomitant]
     Active Substance: ACETAMINOPHEN
     Indication: PRODUCT USED FOR UNKNOWN INDICATION
  3. ATORVASTATIN CALCIUM. [Concomitant]
     Active Substance: ATORVASTATIN CALCIUM
     Indication: BLOOD CHOLESTEROL
  4. LISINOPRIL. [Suspect]
     Active Substance: LISINOPRIL
     Indication: CARDIAC DISORDER
  5. BABY ASPIRIN [Concomitant]
     Active Substance: ASPIRIN
     Indication: PRODUCT USED FOR UNKNOWN INDICATION

REACTIONS (15)
  - Fatigue [Unknown]
  - Loss of consciousness [Unknown]
  - Dysstasia [Unknown]
  - Blood pressure decreased [Unknown]
  - Hospitalisation [Unknown]
  - Neck injury [Unknown]
  - Depressed mood [Unknown]
  - Chest pain [Unknown]
  - Fear [Unknown]
  - Affect lability [Unknown]
  - Anxiety [Unknown]
  - Crying [Unknown]
  - Feeling abnormal [Unknown]
  - Respiration abnormal [Unknown]
  - Decreased activity [Unknown]

NARRATIVE: CASE EVENT DATE: 20140714
